FAERS Safety Report 10210079 (Version 2)
Quarter: 2014Q2

REPORT INFORMATION
  Report Type: Spontaneous
  Country: GB (occurrence: GB)
  Receive Date: 20140602
  Receipt Date: 20140617
  Transmission Date: 20141212
  Serious: Yes (Hospitalization)
  Sender: FDA-Public Use
  Company Number: GB-TEVA-483477ISR

PATIENT
  Age: 76 Year
  Sex: Female

DRUGS (5)
  1. AMOXICILLIN W/CLAVULANIC ACID [Suspect]
     Dosage: 1125 MILLIGRAM DAILY;
     Route: 048
     Dates: start: 20140212, end: 20140312
  2. SYMBICORT [Concomitant]
     Dosage: 2 DOSAGE FORMS DAILY; 1 DF : 1 PUFF, 400/12 TURBOHALER (ASTRAZENECA UK LTD)
     Route: 050
  3. CARBOCISTEINE [Concomitant]
     Dosage: 1500 MILLIGRAM DAILY;
     Route: 048
  4. RAMIPRIL [Concomitant]
     Dosage: 2.5 MILLIGRAM DAILY; MORNING
     Route: 048
  5. RANITIDINE [Concomitant]
     Dosage: 300 MILLIGRAM DAILY;
     Route: 048

REACTIONS (6)
  - Liver function test abnormal [Recovering/Resolving]
  - Jaundice [Recovering/Resolving]
  - Pruritus [Unknown]
  - Chromaturia [Unknown]
  - Steatorrhoea [Unknown]
  - Abdominal pain [Unknown]
